FAERS Safety Report 6805441-0 (Version None)
Quarter: 2010Q2

REPORT INFORMATION
  Report Type: 
  Country: None (occurrence: None)
  Receive Date: 20100628
  Receipt Date: 20071105
  Transmission Date: 20101027
  Serious: No
  Sender: FDA-Public Use
  Company Number: US-PFIZER INC-2007093060

PATIENT
  Sex: Female
  Weight: 68.2 kg

DRUGS (3)
  1. XALATAN [Suspect]
     Indication: GLAUCOMA
     Route: 031
     Dates: start: 20070901, end: 20071103
  2. ANTIDEPRESSANTS [Concomitant]
  3. SYSTANE [Concomitant]
     Indication: DRY EYE
     Route: 031

REACTIONS (2)
  - EYE IRRITATION [None]
  - INSOMNIA [None]
